FAERS Safety Report 8386316-5 (Version None)
Quarter: 2012Q2

REPORT INFORMATION
  Report Type: 
  Country: None (occurrence: None)
  Receive Date: 20120525
  Receipt Date: 20120222
  Transmission Date: 20120825
  Serious: No
  Sender: FDA-Public Use
  Company Number: US-VERTEX PHARMACEUTICALS INC.-AE-2012-002522

PATIENT
  Age: 9 Year
  Sex: Female

DRUGS (6)
  1. NASONEX [Concomitant]
     Indication: CYSTIC FIBROSIS
  2. KALYDECO [Suspect]
     Indication: CYSTIC FIBROSIS
     Route: 048
     Dates: start: 20120212
  3. ALBUTEROL [Concomitant]
     Indication: CYSTIC FIBROSIS
  4. ZENPEP(PANCREALIPASE) [Concomitant]
     Indication: CYSTIC FIBROSIS
  5. FLOVENT [Concomitant]
     Indication: CYSTIC FIBROSIS
  6. TOBI INHALATION SOLUTION [Concomitant]
     Indication: CYSTIC FIBROSIS

REACTIONS (4)
  - HEPATIC PAIN [None]
  - BACK PAIN [None]
  - FLANK PAIN [None]
  - ABDOMINAL PAIN [None]
